FAERS Safety Report 6263508-2 (Version None)
Quarter: 2009Q3

REPORT INFORMATION
  Report Type: 
  Country: None (occurrence: None)
  Receive Date: 20090710
  Receipt Date: 20090325
  Transmission Date: 20100115
  Serious: No
  Sender: FDA-Public Use
  Company Number: A0775340A

PATIENT
  Age: 64 Year
  Sex: Female

DRUGS (9)
  1. TYKERB [Suspect]
     Indication: BREAST CANCER
     Dosage: 5TAB PER DAY
     Route: 048
     Dates: start: 20090303
  2. ATENOLOL [Concomitant]
  3. ZETIA [Concomitant]
  4. ARIMIDEX [Concomitant]
  5. LIPITOR [Concomitant]
  6. VITAMIN D [Concomitant]
  7. ASCORBIC ACID [Concomitant]
  8. DEXAMETHASONE [Concomitant]
  9. ZANTAC [Concomitant]

REACTIONS (1)
  - RASH [None]
